FAERS Safety Report 23978368 (Version 1)
Quarter: 2024Q2

REPORT INFORMATION
  Report Type: Spontaneous
  Country: FR (occurrence: FR)
  Receive Date: 20240614
  Receipt Date: 20240614
  Transmission Date: 20240716
  Serious: Yes (Hospitalization)
  Sender: FDA-Public Use
  Company Number: None

PATIENT
  Age: 77 Year
  Sex: Female
  Weight: 63 kg

DRUGS (2)
  1. DABRAFENIB [Suspect]
     Active Substance: DABRAFENIB
     Indication: Lung adenocarcinoma
     Dosage: 1.5 G, QD, (75 MG X 2/J)
     Route: 048
     Dates: start: 20240426, end: 20240523
  2. TRAMETINIB [Suspect]
     Active Substance: TRAMETINIB
     Indication: Lung adenocarcinoma
     Dosage: 1 MG, QD, (1 MG/JOUR)
     Route: 048
     Dates: start: 20240426, end: 20240523

REACTIONS (4)
  - Thrombocytopenia [Recovering/Resolving]
  - Oral disorder [Recovering/Resolving]
  - Leukopenia [Recovered/Resolved]
  - General physical health deterioration [Recovering/Resolving]

NARRATIVE: CASE EVENT DATE: 20240523
